FAERS Safety Report 8533024 (Version 2)
Quarter: 2012Q4

REPORT INFORMATION
  Report Type: 
  Country: US (occurrence: US)
  Receive Date: 20120427
  Receipt Date: 20121205
  Transmission Date: 20130627
  Serious: Yes (Disabling, Other)
  Sender: FDA-Public Use
  Company Number: US-TEVA-334296USA

PATIENT
  Sex: Male

DRUGS (9)
  1. LEVOFLOXACIN [Suspect]
     Indication: NASOPHARYNGITIS
     Dates: start: 20111025
  2. DOXYCYCLINE [Suspect]
     Dates: start: 20111025
  3. METHYLPREDNISOLONE [Suspect]
     Dates: start: 20111031
  4. PREDNISONE [Suspect]
     Dates: start: 20111020
  5. DEXAMETHASONE [Suspect]
     Dates: start: 20111026
  6. CEFTRIAXONE [Suspect]
     Dates: start: 20111028
  7. Z-PAK [Suspect]
     Dates: start: 20111016
  8. VALSARTAN [Concomitant]
  9. INHALER (NOS) [Concomitant]

REACTIONS (23)
  - Tendon rupture [Unknown]
  - Rotator cuff syndrome [Unknown]
  - Activities of daily living impaired [Unknown]
  - Pain in extremity [Unknown]
  - Myalgia [Unknown]
  - Musculoskeletal pain [Unknown]
  - Musculoskeletal stiffness [Unknown]
  - Contusion [Unknown]
  - Skin discolouration [Unknown]
  - Musculoskeletal deformity [Unknown]
  - Muscular weakness [Unknown]
  - Scar [Unknown]
  - Tendon pain [Unknown]
  - Arthralgia [Unknown]
  - Movement disorder [Unknown]
  - Back disorder [Unknown]
  - Joint crepitation [Unknown]
  - Heart rate increased [Unknown]
  - Blood pressure increased [Unknown]
  - Insomnia [Unknown]
  - Amnesia [Unknown]
  - Thinking abnormal [Unknown]
  - Nightmare [Unknown]
